FAERS Safety Report 6607765-9 (Version None)
Quarter: 2010Q1

REPORT INFORMATION
  Report Type: 
  Country: None (occurrence: None)
  Receive Date: 20100301
  Receipt Date: 20100115
  Transmission Date: 20100710
  Serious: Yes (Life-Threatening, Hospitalization)
  Sender: FDA-Public Use
  Company Number: GR-JNJFOC-20091106997

PATIENT
  Age: 84 Year
  Sex: Female

DRUGS (5)
  1. TAVANIC [Suspect]
     Indication: BRONCHIECTASIS
     Route: 065
     Dates: start: 20091103
  2. DIAMICRON [Suspect]
     Indication: DIABETES MELLITUS
     Route: 065
  3. PIOGLITAZONE [Suspect]
     Indication: DIABETES MELLITUS
     Route: 065
  4. ANTIDEPRESSANT NOS [Concomitant]
     Route: 065
  5. CEFPROZIL [Concomitant]
     Indication: BRONCHIECTASIS
     Route: 065

REACTIONS (1)
  - HYPOGLYCAEMIC COMA [None]
